FAERS Safety Report 25968410 (Version 1)
Quarter: 2025Q4

REPORT INFORMATION
  Report Type: Spontaneous
  Country: GB (occurrence: GB)
  Receive Date: 20251028
  Receipt Date: 20251028
  Transmission Date: 20260118
  Serious: Yes (Other)
  Sender: RANBAXY
  Company Number: GB-MHRA-MED-202510131802071760-QVRGH

PATIENT
  Age: 37 Year
  Sex: Male
  Weight: 97 kg

DRUGS (1)
  1. CIPROFLOXACIN [Suspect]
     Active Substance: CIPROFLOXACIN
     Indication: Adverse drug reaction
     Dosage: UNK
     Route: 065
     Dates: start: 20250106, end: 20250107

REACTIONS (3)
  - Medication error [Unknown]
  - Epicondylitis [Not Recovered/Not Resolved]
  - Epicondylitis [Not Recovered/Not Resolved]

NARRATIVE: CASE EVENT DATE: 20250207
